FAERS Safety Report 13241800 (Version 2)
Quarter: 2017Q1

REPORT INFORMATION
  Report Type: Spontaneous
  Country: US (occurrence: US)
  Receive Date: 20170217
  Receipt Date: 20170310
  Transmission Date: 20170428
  Serious: No
  Sender: FDA-Public Use
  Company Number: US-PFIZER INC-2017064225

PATIENT
  Sex: Female

DRUGS (1)
  1. LYRICA [Suspect]
     Active Substance: PREGABALIN
     Dosage: 1 DF, DAILY (INSTEAD OF TWO PILLS)

REACTIONS (4)
  - Intentional product use issue [Unknown]
  - Pain [Unknown]
  - Depressed mood [Unknown]
  - Pain in extremity [Unknown]
